FAERS Safety Report 18464432 (Version 1)
Quarter: 2020Q4

REPORT INFORMATION
  Report Type: Spontaneous
  Country: CA (occurrence: CA)
  Receive Date: 20201104
  Receipt Date: 20201104
  Transmission Date: 20210114
  Serious: Yes (Hospitalization, Other)
  Sender: FDA-Public Use
  Company Number: CA-JNJFOC-20201050034

PATIENT
  Age: 42 Year
  Sex: Male

DRUGS (6)
  1. ADVAGRAF [Concomitant]
     Active Substance: TACROLIMUS
     Dosage: EXTENDED RELEASE
  2. DESOXIMETASONE. [Concomitant]
     Active Substance: DESOXIMETASONE
  3. PREDNISONE. [Concomitant]
     Active Substance: PREDNISONE
  4. LANTUS [Concomitant]
     Active Substance: INSULIN GLARGINE
     Route: 058
  5. INFLIXIMAB, RECOMBINANT [Suspect]
     Active Substance: INFLIXIMAB
     Indication: CROHN^S DISEASE
     Route: 042
  6. MYCOPHENOLATE MOFETIL. [Concomitant]
     Active Substance: MYCOPHENOLATE MOFETIL

REACTIONS (4)
  - Intentional product use issue [Unknown]
  - Inappropriate schedule of product administration [Unknown]
  - Cytomegalovirus colitis [Unknown]
  - Off label use [Unknown]
